FAERS Safety Report 20078046 (Version 2)
Quarter: 2021Q4

REPORT INFORMATION
  Report Type: Report from Study
  Country: NL (occurrence: NL)
  Receive Date: 20211117
  Receipt Date: 20211124
  Transmission Date: 20220303
  Serious: Yes (Death, Hospitalization, Other)
  Sender: FDA-Public Use
  Company Number: NL-ABBVIE-21K-114-4162194-00

PATIENT
  Sex: Male

DRUGS (6)
  1. VENETOCLAX [Suspect]
     Active Substance: VENETOCLAX
     Indication: Acute myeloid leukaemia
     Dosage: DAY 1 TO 28, CYCLE 1 AND 2
     Route: 048
     Dates: start: 20210525, end: 20210623
  2. VENETOCLAX [Suspect]
     Active Substance: VENETOCLAX
     Dosage: DAY 1?CYCLE 1 AND 2
     Route: 048
     Dates: start: 20210721, end: 20210810
  3. AZACITIDINE [Suspect]
     Active Substance: AZACITIDINE
     Indication: Abnormal DNA methylation
     Dosage: DAY 1 TO 7 IN 28 DAYS CYCLE
     Route: 065
     Dates: start: 20210525, end: 20210726
  4. AZACITIDINE [Suspect]
     Active Substance: AZACITIDINE
     Indication: Acute myeloid leukaemia
  5. POSACONAZOLE [Concomitant]
     Active Substance: POSACONAZOLE
     Indication: Product used for unknown indication
     Dates: start: 20210721, end: 20210810
  6. CYCLOSPORINE [Concomitant]
     Active Substance: CYCLOSPORINE
     Indication: Product used for unknown indication

REACTIONS (9)
  - Haematotoxicity [Fatal]
  - Lung disorder [Not Recovered/Not Resolved]
  - Mediastinal mass [Not Recovered/Not Resolved]
  - Bronchopulmonary aspergillosis [Not Recovered/Not Resolved]
  - Haematotoxicity [Recovered/Resolved]
  - Neutropenia [Recovered/Resolved]
  - Neutropenia [Not Recovered/Not Resolved]
  - Febrile neutropenia [Not Recovered/Not Resolved]
  - Off label use [Unknown]

NARRATIVE: CASE EVENT DATE: 20210101
